FAERS Safety Report 4373423-7 (Version None)
Quarter: 2004Q2

REPORT INFORMATION
  Report Type: 
  Country: None (occurrence: None)
  Receive Date: 20040603
  Receipt Date: 20040520
  Transmission Date: 20050107
  Serious: Yes (Life-Threatening, Hospitalization)
  Sender: FDA-Public Use
  Company Number: 2004214950GB

PATIENT
  Age: 48 Year
  Sex: Female

DRUGS (5)
  1. CELEBREX [Suspect]
     Dosage: 200 MG, BID, ORAL
     Route: 048
     Dates: start: 20030601
  2. ENBREL [Suspect]
     Indication: JUVENILE ARTHRITIS
     Dosage: 50 UNK, SUBCUTANEOUS
     Route: 058
     Dates: start: 20031001, end: 20031201
  3. FUROSEMIDE [Suspect]
     Dosage: 40 MG, QD, ORAL
     Route: 048
     Dates: start: 20030601
  4. PREDNISOLONE [Suspect]
     Dosage: 20 MG, QD, ORAL
     Route: 048
     Dates: start: 20030601
  5. CALCITONIN [Concomitant]

REACTIONS (6)
  - ARRHYTHMIA [None]
  - BLOOD POTASSIUM INCREASED [None]
  - DIALYSIS [None]
  - PNEUMONIA [None]
  - RENAL FAILURE ACUTE [None]
  - SEPSIS [None]
